FAERS Safety Report 18996303 (Version 1)
Quarter: 2021Q1

REPORT INFORMATION
  Report Type: Spontaneous
  Country: NL (occurrence: NL)
  Receive Date: 20210311
  Receipt Date: 20210311
  Transmission Date: 20210420
  Serious: Yes (Other)
  Sender: FDA-Public Use
  Company Number: NL-TEVA-2021-NL-1888101

PATIENT
  Age: 56 Year
  Sex: Male
  Weight: 96 kg

DRUGS (1)
  1. LEVOTHYROXINE SODIUM. [Suspect]
     Active Substance: LEVOTHYROXINE SODIUM
     Indication: HYPOTHYROIDISM
     Dosage: 1 DF
     Route: 065
     Dates: start: 20190823, end: 20190918

REACTIONS (9)
  - Disturbance in attention [Unknown]
  - Faeces soft [Unknown]
  - Insomnia [Unknown]
  - Eye irritation [Unknown]
  - Hyperhidrosis [Unknown]
  - Cognitive disorder [Unknown]
  - Erectile dysfunction [Recovering/Resolving]
  - Listless [Unknown]
  - Fatigue [Unknown]

NARRATIVE: CASE EVENT DATE: 20190831
